FAERS Safety Report 6311437-8 (Version None)
Quarter: 2009Q3

REPORT INFORMATION
  Report Type: 
  Country: None (occurrence: None)
  Receive Date: 20090817
  Receipt Date: 20090805
  Transmission Date: 20100115
  Serious: Yes (Hospitalization)
  Sender: FDA-Public Use
  Company Number: CH-PFIZER INC-2009250369

PATIENT
  Age: 81 Year

DRUGS (11)
  1. ALDACTONE [Suspect]
     Dosage: 50 MG, DAILY
     Route: 048
     Dates: end: 20090408
  2. VALSARTAN [Suspect]
     Dosage: 80 MG, DAILY
     Route: 048
     Dates: end: 20090408
  3. BELOC ZOK [Suspect]
     Dosage: 50 MG, DAILY
     Route: 048
  4. ASPIRIN [Concomitant]
     Dosage: 100 MG, DAILY
     Route: 048
  5. NEXIUM [Concomitant]
     Dosage: 40 MG, DAILY
     Route: 048
  6. CITALOPRAM [Concomitant]
     Dosage: 20 MG, DAILY
     Route: 048
  7. PRAVASTATIN SODIUM [Concomitant]
     Dosage: 40 MG, DAILY
     Route: 048
  8. SINTROM [Concomitant]
     Dosage: UNK
  9. BECOZYM [Concomitant]
     Dosage: 1 DF, DAILY
     Dates: start: 20090331
  10. BENERVA [Concomitant]
     Dosage: 300 MG, DAILY
     Route: 048
     Dates: start: 20090331
  11. IMODIUM [Concomitant]
     Dosage: UNK
     Route: 048
     Dates: start: 20090331, end: 20090407

REACTIONS (2)
  - CONDITION AGGRAVATED [None]
  - HYPOVOLAEMIC SHOCK [None]
